FAERS Safety Report 22381492 (Version 1)
Quarter: 2023Q2

REPORT INFORMATION
  Report Type: Spontaneous
  Country: US (occurrence: US)
  Receive Date: 20230530
  Receipt Date: 20230530
  Transmission Date: 20230721
  Serious: Yes (Hospitalization)
  Sender: FDA-Public Use
  Company Number: US-SAMSUNG BIOEPIS-SB-2023-14248

PATIENT
  Age: 43 Year
  Sex: Female

DRUGS (2)
  1. RENFLEXIS [Suspect]
     Active Substance: INFLIXIMAB-ABDA
     Indication: Crohn^s disease
     Dosage: UNKNOWN. INFLIXIMAB-ABDA
     Route: 065
  2. ADALIMUMAB [Suspect]
     Active Substance: ADALIMUMAB
     Indication: Crohn^s disease
     Dosage: UNKNOWN
     Route: 065

REACTIONS (4)
  - Gastroenteritis salmonella [Recovering/Resolving]
  - Crohn^s disease [Recovering/Resolving]
  - Drug specific antibody present [Unknown]
  - Treatment failure [Unknown]
